FAERS Safety Report 9129951 (Version 1)
Quarter: 2013Q1

REPORT INFORMATION
  Report Type: Spontaneous
  Country: US (occurrence: US)
  Receive Date: 20130228
  Receipt Date: 20130228
  Transmission Date: 20140127
  Serious: No
  Sender: FDA-Public Use
  Company Number: US-009507513-1302USA013595

PATIENT
  Sex: Male

DRUGS (2)
  1. AFRIN NO DRIP SEVERE CONGESTION [Suspect]
     Indication: PRODUCT USED FOR UNKNOWN INDICATION
     Dosage: UNK, ONCE
     Route: 045
     Dates: start: 20121114
  2. AFRIN NO DRIP SEVERE CONGESTION [Suspect]
     Dosage: UNK, ONCE
     Route: 045
     Dates: start: 20121115

REACTIONS (2)
  - Adverse reaction [Not Recovered/Not Resolved]
  - Parosmia [Not Recovered/Not Resolved]
